FAERS Safety Report 9358796 (Version 3)
Quarter: 2014Q3

REPORT INFORMATION
  Report Type: Spontaneous
  Country: US (occurrence: US)
  Receive Date: 20130620
  Receipt Date: 20140702
  Transmission Date: 20150326
  Serious: Yes (Hospitalization)
  Sender: FDA-Public Use
  Company Number: US-BAYER-2013-074095

PATIENT
  Age: 40 Year
  Sex: Female
  Weight: 72.56 kg

DRUGS (3)
  1. ALBUTEROL INHALER [Concomitant]
     Active Substance: ALBUTEROL
     Dosage: AS NEEDED
  2. PROVENTIL [Concomitant]
     Active Substance: ALBUTEROL
  3. YASMIN [Suspect]
     Active Substance: DROSPIRENONE\ETHINYL ESTRADIOL
     Dosage: UNK
     Dates: start: 200406, end: 20060316

REACTIONS (14)
  - Pain [None]
  - Emotional distress [None]
  - Hemiparesis [None]
  - Hypoaesthesia [None]
  - Paraesthesia [None]
  - Dysarthria [None]
  - Mental impairment [None]
  - Amnesia [None]
  - Transient ischaemic attack [None]
  - Anxiety [None]
  - Psychological trauma [None]
  - Lethargy [None]
  - Muscular weakness [None]
  - Injury [None]

NARRATIVE: CASE EVENT DATE: 20060306
